FAERS Safety Report 8285169-3 (Version None)
Quarter: 2012Q2

REPORT INFORMATION
  Report Type: 
  Country: None (occurrence: None)
  Receive Date: 20120413
  Receipt Date: 20110921
  Transmission Date: 20120825
  Serious: No
  Sender: FDA-Public Use
  Company Number: US-ASTRAZENECA-2011SE57200

PATIENT
  Age: 12924 Day
  Sex: Female
  Weight: 66.2 kg

DRUGS (1)
  1. NEXIUM [Suspect]
     Indication: FLATULENCE
     Route: 048
     Dates: start: 20110920

REACTIONS (3)
  - GASTROINTESTINAL PAIN [None]
  - OFF LABEL USE [None]
  - ABDOMINAL PAIN [None]
